FAERS Safety Report 25340052 (Version 1)
Quarter: 2025Q2

REPORT INFORMATION
  Report Type: Other
  Country: FR (occurrence: FR)
  Receive Date: 20250521
  Receipt Date: 20250521
  Transmission Date: 20250717
  Serious: Yes (Other)
  Sender: ZYDUS PHARM
  Company Number: None

PATIENT

DRUGS (3)
  1. LEVETIRACETAM [Suspect]
     Active Substance: LEVETIRACETAM
     Indication: Medication error
     Route: 048
     Dates: start: 20250105, end: 20250105
  2. SERTRALINE [Suspect]
     Active Substance: SERTRALINE HYDROCHLORIDE
     Indication: Medication error
     Route: 048
     Dates: start: 20250105, end: 20250105
  3. CLOZAPINE [Suspect]
     Active Substance: CLOZAPINE
     Indication: Medication error
     Route: 048
     Dates: start: 20250105, end: 20250105

REACTIONS (4)
  - Cognitive disorder [Recovered/Resolved]
  - Asthenia [Recovered/Resolved]
  - Wrong product administered [Recovered/Resolved]
  - Wrong patient received product [Recovered/Resolved]

NARRATIVE: CASE EVENT DATE: 20250105
